FAERS Safety Report 5105779-1 (Version None)
Quarter: 2006Q3

REPORT INFORMATION
  Report Type: 
  Country: None (occurrence: None)
  Receive Date: 20060915
  Receipt Date: 20060802
  Transmission Date: 20061208
  Serious: Yes (Life-Threatening, Hospitalization)
  Sender: FDA-Public Use
  Company Number: DE-ROCHE-458177

PATIENT
  Age: 78 Year
  Sex: Female
  Weight: 60 kg

DRUGS (2)
  1. PEGASYS [Suspect]
     Route: 065
     Dates: start: 20040519, end: 20040608
  2. COPEGUS [Suspect]
     Route: 065
     Dates: start: 20040519, end: 20040608

REACTIONS (12)
  - ANAEMIA [None]
  - ANISOCYTOSIS [None]
  - COLD SWEAT [None]
  - DIZZINESS [None]
  - FALL [None]
  - FEELING ABNORMAL [None]
  - GASTRITIS [None]
  - GENERAL PHYSICAL HEALTH DETERIORATION [None]
  - MALAISE [None]
  - PALLOR [None]
  - PANCYTOPENIA [None]
  - VISUAL DISTURBANCE [None]
